FAERS Safety Report 18242407 (Version 1)
Quarter: 2020Q3

REPORT INFORMATION
  Report Type: Spontaneous
  Country: JP (occurrence: JP)
  Receive Date: 20200908
  Receipt Date: 20200908
  Transmission Date: 20201103
  Serious: Yes (Other)
  Sender: FDA-Public Use
  Company Number: JP-MYLANLABS-2020M1076192

PATIENT
  Age: 41 Year
  Sex: Male

DRUGS (6)
  1. OLANZAPINE. [Suspect]
     Active Substance: OLANZAPINE
     Indication: HALLUCINATION, TACTILE
  2. OLANZAPINE. [Suspect]
     Active Substance: OLANZAPINE
     Indication: SCHIZOPHRENIA
  3. BLONANSERIN [Suspect]
     Active Substance: BLONANSERIN
     Indication: HALLUCINATION, TACTILE
     Dosage: 16 MILLIGRAM, QD
     Route: 065
  4. BLONANSERIN [Suspect]
     Active Substance: BLONANSERIN
     Indication: DEPERSONALISATION/DEREALISATION DISORDER
     Dosage: INITIAL DOSE NOT STATED
     Route: 065
  5. OLANZAPINE. [Suspect]
     Active Substance: OLANZAPINE
     Indication: DEPERSONALISATION/DEREALISATION DISORDER
     Dosage: 20 MILLIGRAM, QD
     Route: 065
  6. BLONANSERIN [Suspect]
     Active Substance: BLONANSERIN
     Indication: SCHIZOPHRENIA

REACTIONS (1)
  - Drug ineffective [Unknown]
